FAERS Safety Report 6842646 (Version 2)
Quarter: 2014Q3

REPORT INFORMATION
  Report Type: Spontaneous
  Country: US (occurrence: US)
  Receive Date: 20081211
  Receipt Date: 20140901
  Transmission Date: 20150326
  Serious: Yes (Hospitalization, Other)
  Sender: FDA-Public Use
  Company Number: US-AMGEN-KDL276526

PATIENT
  Age: 67 Year
  Sex: Female

DRUGS (3)
  1. METHOTREXATE [Concomitant]
     Active Substance: METHOTREXATE
     Dosage: 15 MG, QWK
     Route: 048
     Dates: start: 2001
  2. ENBREL [Suspect]
     Active Substance: ETANERCEPT
     Dosage: UNK
     Route: 065
  3. ENBREL [Suspect]
     Active Substance: ETANERCEPT
     Indication: RHEUMATOID ARTHRITIS
     Dosage: 50 MG, QWK
     Route: 058
     Dates: start: 200106

REACTIONS (13)
  - Foot deformity [Not Recovered/Not Resolved]
  - Sinusitis [Unknown]
  - Bronchitis [Unknown]
  - Arthralgia [Not Recovered/Not Resolved]
  - Wrist fracture [Unknown]
  - Tooth abscess [Not Recovered/Not Resolved]
  - Finger deformity [Not Recovered/Not Resolved]
  - Musculoskeletal stiffness [Not Recovered/Not Resolved]
  - Chondrolysis [Not Recovered/Not Resolved]
  - Fall [Not Recovered/Not Resolved]
  - Joint stiffness [Not Recovered/Not Resolved]
  - Hand deformity [Not Recovered/Not Resolved]
  - Abdominal discomfort [Unknown]

NARRATIVE: CASE EVENT DATE: 2008
